FAERS Safety Report 10548128 (Version 1)
Quarter: 2014Q4

REPORT INFORMATION
  Report Type: Spontaneous
  Country: TR (occurrence: None)
  Receive Date: 20141024
  Receipt Date: 20141024
  Transmission Date: 20150529
  Serious: Yes (Other)
  Sender: FDA-Public Use
  Company Number: 2014JUB00173

PATIENT
  Age: 4 Year
  Sex: Male

DRUGS (1)
  1. OXCARBAZEPINE. [Suspect]
     Active Substance: OXCARBAZEPINE
     Indication: EPILEPSY

REACTIONS (10)
  - Lymphadenopathy [None]
  - Haematological malignancy [None]
  - Face oedema [None]
  - Monocytosis [None]
  - Pyrexia [None]
  - Drug reaction with eosinophilia and systemic symptoms [None]
  - Hepatic enzyme increased [None]
  - Blood lactate dehydrogenase increased [None]
  - Multi-organ disorder [None]
  - Leukaemoid reaction [None]
